FAERS Safety Report 6365248-8 (Version None)
Quarter: 2009Q3

REPORT INFORMATION
  Report Type: 
  Country: None (occurrence: None)
  Receive Date: 20090919
  Receipt Date: 20090810
  Transmission Date: 20100115
  Serious: No
  Sender: FDA-Public Use
  Company Number: US-ABBOTT-09P-163-0590404-00

PATIENT
  Sex: Female
  Weight: 86.26 kg

DRUGS (1)
  1. HUMIRA [Suspect]
     Indication: PSORIATIC ARTHROPATHY
     Dates: start: 20061101

REACTIONS (5)
  - DRUG DOSE OMISSION [None]
  - ENDODONTIC PROCEDURE [None]
  - ORAL INFECTION [None]
  - SWELLING FACE [None]
  - TOOTHACHE [None]
